FAERS Safety Report 5250140-2 (Version None)
Quarter: 2007Q1

REPORT INFORMATION
  Report Type: 
  Country: None (occurrence: None)
  Receive Date: 20070228
  Receipt Date: 20060313
  Transmission Date: 20070707
  Serious: No
  Sender: FDA-Public Use
  Company Number: US-GLAXOSMITHKLINE-A0593340A

PATIENT
  Age: 22 Year
  Sex: Female
  Weight: 72.7 kg

DRUGS (2)
  1. LAMICTAL [Suspect]
     Indication: BIPOLAR DISORDER
     Dosage: 25MG UNKNOWN
     Route: 048
     Dates: start: 20051222, end: 20060104
  2. OXYCONTIN [Concomitant]
     Route: 048
     Dates: start: 20050102

REACTIONS (1)
  - RASH [None]
